FAERS Safety Report 5158142-1 (Version None)
Quarter: 2006Q4

REPORT INFORMATION
  Report Type: 
  Country: None (occurrence: None)
  Receive Date: 20061120
  Receipt Date: 20061120
  Transmission Date: 20070319
  Serious: No
  Sender: FDA-Public Use
  Company Number: None

PATIENT
  Age: 55 Year
  Sex: Male
  Weight: 40.8237 kg

DRUGS (3)
  1. SEROQUEL [Suspect]
     Indication: BIPOLAR DISORDER
     Dates: start: 20061102, end: 20061102
  2. SEROQUEL [Suspect]
     Indication: MANIA
     Dates: start: 20061102, end: 20061102
  3. TRILEPTAL [Concomitant]

REACTIONS (4)
  - DISORIENTATION [None]
  - GAIT DISTURBANCE [None]
  - MUSCLE SPASMS [None]
  - SOMNOLENCE [None]
